FAERS Safety Report 25186710 (Version 2)
Quarter: 2025Q4

REPORT INFORMATION
  Report Type: Spontaneous
  Country: US (occurrence: US)
  Receive Date: 20250411
  Receipt Date: 20251110
  Transmission Date: 20260119
  Serious: No
  Sender: SANOFI AVENTIS
  Company Number: US-SA-2025SA102374

PATIENT
  Age: 10 Year
  Sex: Male

DRUGS (1)
  1. DUPIXENT [Suspect]
     Active Substance: DUPILUMAB
     Indication: Dermatitis atopic
     Dosage: 200 MG, QOW
     Route: 058

REACTIONS (6)
  - Eyelid skin dryness [Unknown]
  - Eye irritation [Unknown]
  - Ocular hyperaemia [Unknown]
  - Eye swelling [Unknown]
  - Eczema [Unknown]
  - Drug ineffective [Unknown]
